FAERS Safety Report 8173481-8 (Version None)
Quarter: 2012Q1

REPORT INFORMATION
  Report Type: 
  Country: None (occurrence: None)
  Receive Date: 20120229
  Receipt Date: 20120221
  Transmission Date: 20120608
  Serious: Yes (Other)
  Sender: FDA-Public Use
  Company Number: CA-JNJFOC-20120210892

PATIENT
  Sex: Female
  Weight: 77 kg

DRUGS (10)
  1. CODEINE SULFATE [Concomitant]
     Route: 065
  2. WARFARIN [Concomitant]
     Route: 065
  3. PRILOSEC [Concomitant]
     Route: 065
  4. ZOPICLONE [Concomitant]
     Route: 065
  5. REMICADE [Suspect]
     Indication: CROHN'S DISEASE
     Route: 042
     Dates: start: 20061208
  6. NAPROXEN (ALEVE) [Concomitant]
     Route: 065
  7. IMURAN [Concomitant]
     Route: 065
  8. SERTRALINE HYDROCHLORIDE [Concomitant]
     Route: 065
  9. ALLOPURINOL [Concomitant]
     Route: 065
  10. TPN [Concomitant]
     Route: 065

REACTIONS (6)
  - NERVOUS SYSTEM DISORDER [None]
  - MUSCULOSKELETAL PAIN [None]
  - PARAESTHESIA [None]
  - CHEST PAIN [None]
  - ARTHRALGIA [None]
  - PAIN IN EXTREMITY [None]
